FAERS Safety Report 7593081-8 (Version None)
Quarter: 2011Q3

REPORT INFORMATION
  Report Type: 
  Country: None (occurrence: None)
  Receive Date: 20110706
  Receipt Date: 20110627
  Transmission Date: 20111222
  Serious: Yes (Hospitalization)
  Sender: FDA-Public Use
  Company Number: US-ASTRAZENECA-2011SE38609

PATIENT

DRUGS (1)
  1. BUDESONIDE FORMOTEROL [Suspect]
     Indication: ASTHMA
     Dosage: 80/4.5 UG OR 160/4.5 UG
     Route: 055
     Dates: start: 20080101

REACTIONS (1)
  - DYSPNOEA [None]
